FAERS Safety Report 5281463-9 (Version None)
Quarter: 2007Q1

REPORT INFORMATION
  Report Type: 
  Country: None (occurrence: None)
  Receive Date: 20070330
  Receipt Date: 20070322
  Transmission Date: 20070707
  Serious: Yes (Other)
  Sender: FDA-Public Use
  Company Number: DE-SOLVAY-00307000957

PATIENT
  Age: 13215 Day
  Sex: Female
  Weight: 55 kg

DRUGS (1)
  1. CREON [Suspect]
     Indication: IRRITABLE BOWEL SYNDROME
     Dosage: DAILY DOSE: 3 DOSAGE FORM
     Route: 048
     Dates: start: 20061101

REACTIONS (1)
  - PROCTITIS ULCERATIVE [None]
